FAERS Safety Report 7752182-1 (Version None)
Quarter: 2011Q3

REPORT INFORMATION
  Report Type: 
  Country: None (occurrence: None)
  Receive Date: 20110915
  Receipt Date: 20110912
  Transmission Date: 20111222
  Serious: Yes (Other)
  Sender: FDA-Public Use
  Company Number: CA-SP-2011-08505

PATIENT
  Sex: Female

DRUGS (2)
  1. CHEMOTHERAPY [Suspect]
     Dosage: SINGLE IMMEDIATE DOSE POST TURBT
  2. TICE BCG [Suspect]
     Indication: BLADDER CANCER
     Dosage: NOT REPORTED
     Route: 043

REACTIONS (4)
  - URETERIC OBSTRUCTION [None]
  - CYSTITIS [None]
  - CONTRACTED BLADDER [None]
  - MALAISE [None]
